FAERS Safety Report 4546481-4 (Version None)
Quarter: 2005Q1

REPORT INFORMATION
  Report Type: 
  Country: None (occurrence: None)
  Receive Date: 20050103
  Receipt Date: 20041222
  Transmission Date: 20050727
  Serious: Yes (Other)
  Sender: FDA-Public Use
  Company Number: 2004111460

PATIENT
  Age: 27 Year
  Sex: Female
  Weight: 90 kg

DRUGS (4)
  1. DEPO-PROVERA [Suspect]
     Indication: CONTRACEPTION
     Dosage: 150 MG (150 MG, FIRST INJECTION), INTRAMUSCULAR; SEE IMAGE
     Route: 030
     Dates: start: 20040812, end: 20040812
  2. DEPO-PROVERA [Suspect]
     Indication: CONTRACEPTION
     Dosage: 150 MG (150 MG, FIRST INJECTION), INTRAMUSCULAR; SEE IMAGE
     Route: 030
     Dates: start: 20041104, end: 20041104
  3. TRIMETHOPRIM [Suspect]
     Indication: URINARY TRACT INFECTION
     Dosage: 200 MG (200 MD, BID), ORAL; SEE IMAGE
     Route: 048
     Dates: start: 20041116, end: 20041118
  4. TRIMETHOPRIM [Suspect]
     Indication: URINARY TRACT INFECTION
     Dosage: 200 MG (200 MD, BID), ORAL; SEE IMAGE
     Route: 048
     Dates: start: 20041125, end: 20041202

REACTIONS (4)
  - CHROMATURIA [None]
  - JAUNDICE [None]
  - PRURITUS [None]
  - URINARY TRACT INFECTION [None]
